FAERS Safety Report 6918010-9 (Version None)
Quarter: 2010Q3

REPORT INFORMATION
  Report Type: 
  Country: None (occurrence: None)
  Receive Date: 20100810
  Receipt Date: 20091209
  Transmission Date: 20110219
  Serious: No
  Sender: FDA-Public Use
  Company Number: US-PFIZER INC-2009281153

PATIENT
  Sex: Female
  Weight: 63.9 kg

DRUGS (7)
  1. TOVIAZ [Suspect]
     Dosage: 4 MG, 1X/DAY
  2. DETROL LA [Suspect]
     Dosage: 4 MG, 1X/DAY
     Route: 048
     Dates: start: 20010101, end: 20090901
  3. DARIFENACIN HYDROBROMIDE [Suspect]
     Dosage: UNK
     Route: 048
  4. EVISTA [Concomitant]
     Dosage: 60 MG, 1X/DAY
     Route: 048
  5. DIOVAN HCT [Concomitant]
     Dosage: [HYDROCHLOROTHIAZIDE 12.5 MG] / [VALSARTAN 160 MG], DAILY
     Route: 048
  6. SYNTHROID [Concomitant]
     Indication: THYROID CANCER
     Dosage: 0.125 MG, 2X/DAY
     Route: 048
  7. MELOXICAM [Concomitant]
     Indication: ARTHRITIS
     Dosage: 7.5 MG, 1X/DAY
     Route: 048

REACTIONS (4)
  - CHAPPED LIPS [None]
  - CHEILITIS [None]
  - DRUG INEFFECTIVE [None]
  - DRY MOUTH [None]
